FAERS Safety Report 9852379 (Version 1)
Quarter: 2013Q4

REPORT INFORMATION
  Report Type: Spontaneous
  Country: US (occurrence: None)
  Receive Date: 20131226
  Receipt Date: 20131226
  Transmission Date: 20140711
  Serious: Yes (Other)
  Sender: FDA-Public Use
  Company Number: PHEH2013US016815

PATIENT
  Age: 82 Year
  Sex: Female

DRUGS (1)
  1. AFINITOR (RAD) [Suspect]
     Indication: BREAST CANCER
     Route: 048

REACTIONS (2)
  - Hyperglycaemia [None]
  - Tumour marker increased [None]
